FAERS Safety Report 16873892 (Version 1)
Quarter: 2019Q4

REPORT INFORMATION
  Report Type: Spontaneous
  Country: GB (occurrence: GB)
  Receive Date: 20191001
  Receipt Date: 20191001
  Transmission Date: 20200122
  Serious: Yes (Hospitalization, Other)
  Sender: FDA-Public Use
  Company Number: GB-VISTAPHARM, INC.-VER201909-001027

PATIENT
  Age: 61 Year
  Sex: Male

DRUGS (14)
  1. PREDNISOLONE. [Suspect]
     Active Substance: PREDNISOLONE
     Indication: UVEITIS
     Dosage: 1.5 MG/KG
  2. PREDNISOLONE. [Suspect]
     Active Substance: PREDNISOLONE
     Dosage: 20 MG/DAY, 2 MONTHS AFTER DISCHARGE
  3. INFLIXIMAB [Concomitant]
     Active Substance: INFLIXIMAB
     Dosage: 5 MG/KG 8-WEEKLY, AFTER DISCHARGE
  4. PREDNISOLONE. [Suspect]
     Active Substance: PREDNISOLONE
     Dosage: 20 MG/DAY, THREE MONTHS LATER
  5. MYCOPHENOLATE MOFETIL. [Concomitant]
     Active Substance: MYCOPHENOLATE MOFETIL
     Indication: UVEITIS
     Dosage: 2.5 G/DAY
  6. COTRIMOXAZOLE [Concomitant]
     Active Substance: SULFAMETHOXAZOLE\TRIMETHOPRIM
     Indication: PRODUCT USED FOR UNKNOWN INDICATION
     Dosage: 480 MG, THREE TIMES WEEKLY
  7. INFLIXIMAB [Concomitant]
     Active Substance: INFLIXIMAB
     Indication: PRODUCT USED FOR UNKNOWN INDICATION
     Dosage: 5 MG/KG AT WEEKS 0, 2, 6 AND 8-WEEKLY
  8. PREDNISOLONE. [Suspect]
     Active Substance: PREDNISOLONE
     Dosage: 40-60 MG/DAY
  9. PREDNISOLONE. [Suspect]
     Active Substance: PREDNISOLONE
     Dosage: INCREASE TO 40 MG/DAY
  10. PREDNISOLONE. [Suspect]
     Active Substance: PREDNISOLONE
     Dosage: 40 MG DAILY AFTER DISCHARGE
  11. METHYLPREDNISOLONE. [Concomitant]
     Active Substance: METHYLPREDNISOLONE
     Indication: UVEITIS
     Dosage: 3 ? 1 G
     Route: 042
  12. TRIAMCINOLONE [Concomitant]
     Active Substance: TRIAMCINOLONE
     Indication: PRODUCT USED FOR UNKNOWN INDICATION
     Dosage: UNKNOWN
  13. AZATHIOPRINE. [Concomitant]
     Active Substance: AZATHIOPRINE
     Indication: UVEITIS
     Dosage: UNKNOWN
  14. INFLIXIMAB [Concomitant]
     Active Substance: INFLIXIMAB
     Dosage: INCREASED TO TO 6-WEEKLY
     Route: 042

REACTIONS (5)
  - Cataract [Unknown]
  - Glaucoma [Unknown]
  - Pulmonary sepsis [Unknown]
  - Cushingoid [Unknown]
  - Lymphopenia [Unknown]
